FAERS Safety Report 6775573-4 (Version None)
Quarter: 2010Q2

REPORT INFORMATION
  Report Type: 
  Country: None (occurrence: None)
  Receive Date: 20100617
  Receipt Date: 20100614
  Transmission Date: 20101027
  Serious: Yes (Other)
  Sender: FDA-Public Use
  Company Number: DE-SANOFI-AVENTIS-2010SA033951

PATIENT
  Sex: Male
  Weight: 73 kg

DRUGS (1)
  1. MULTAQ [Suspect]
     Dosage: DAILY DOSE: 800 MG MILLGRAM(S) EVERY DAYS
     Route: 048
     Dates: start: 20100324, end: 20100520

REACTIONS (3)
  - BLOOD CREATININE INCREASED [None]
  - GLOMERULAR FILTRATION RATE DECREASED [None]
  - RENAL IMPAIRMENT [None]
